FAERS Safety Report 5488999-6 (Version None)
Quarter: 2007Q4

REPORT INFORMATION
  Report Type: 
  Country: None (occurrence: None)
  Receive Date: 20071016
  Receipt Date: 20071004
  Transmission Date: 20080405
  Serious: Yes (Other)
  Sender: FDA-Public Use
  Company Number: TUK2007A00101

PATIENT
  Age: 56 Year
  Sex: Female

DRUGS (3)
  1. COMPETACT(PIOGLITAZONE HYDROCHLORIDE,METFORMIN HYDROCHLORIDE) [Suspect]
     Indication: DIABETES MELLITUS
     Dosage: 30MG PIOGLITAZONE PLUS 1700MG METFORMIN, ORAL
     Route: 048
     Dates: start: 20070707, end: 20070918
  2. RAPAGLINIDE(REPAGLINIDE) [Concomitant]
  3. LISINOPRIL [Concomitant]

REACTIONS (5)
  - BODY MASS INDEX INCREASED [None]
  - DYSPNOEA [None]
  - MALAISE [None]
  - SENSATION OF HEAVINESS [None]
  - WEIGHT INCREASED [None]
